FAERS Safety Report 7999180-0 (Version None)
Quarter: 2011Q4

REPORT INFORMATION
  Report Type: 
  Country: None (occurrence: None)
  Receive Date: 20111221
  Receipt Date: 20111214
  Transmission Date: 20120403
  Serious: Yes (Other)
  Sender: FDA-Public Use
  Company Number: BR-ABBOTT-11P-020-0883570-00

PATIENT
  Sex: Female
  Weight: 64 kg

DRUGS (14)
  1. OMEPRAZOLE [Concomitant]
     Indication: GASTRIC DISORDER
  2. ARAVA [Suspect]
     Indication: ARTHRITIS
     Dates: end: 20111128
  3. METHOTREXATE [Concomitant]
     Indication: ARTHRITIS
     Dosage: 8 TABLETS EVERY 7 DAYS
     Route: 048
  4. NIMESILIDE [Concomitant]
     Indication: PAIN
  5. ACETYLSALICYLIC ACID SRT [Concomitant]
     Indication: CARDIAC DISORDER
  6. DIGOXIN [Concomitant]
     Indication: CARDIAC DISORDER
  7. ENALAPRIL MALEATE [Concomitant]
     Indication: BLOOD PRESSURE
  8. INSULIN [Concomitant]
     Indication: DIABETES MELLITUS
     Dosage: 4 TIMES A DAY
     Route: 050
  9. HUMIRA [Suspect]
     Indication: RHEUMATOID ARTHRITIS
     Dates: start: 20111128
  10. AMITRIPTYLINE HCL [Concomitant]
     Indication: CEREBROVASCULAR ACCIDENT
  11. HYDROCHLOROTHIAZIDE [Concomitant]
     Indication: BLOOD PRESSURE
  12. CINNARIZINE [Concomitant]
     Indication: LABYRINTHITIS
  13. FLUTICASONE PROPIONATE/SALMETEROL [Concomitant]
     Indication: ASTHMA
  14. HYDROCHLOROTHIAZIDE [Concomitant]
     Indication: TACHYCARDIA
     Route: 048

REACTIONS (15)
  - DIARRHOEA [None]
  - VOMITING [None]
  - WOUND [None]
  - VULVOVAGINAL SWELLING [None]
  - TACHYCARDIA [None]
  - INJECTION SITE PAIN [None]
  - WEIGHT DECREASED [None]
  - HAEMATOCHEZIA [None]
  - STOMATITIS [None]
  - NAUSEA [None]
  - PYREXIA [None]
  - INJECTION SITE DISCOLOURATION [None]
  - VULVOVAGINAL PRURITUS [None]
  - DYSPNOEA [None]
  - VULVOVAGINAL ERYTHEMA [None]
